FAERS Safety Report 21490107 (Version 1)
Quarter: 2022Q4

REPORT INFORMATION
  Report Type: Spontaneous
  Country: GB (occurrence: GB)
  Receive Date: 20221021
  Receipt Date: 20221021
  Transmission Date: 20230112
  Serious: Yes (Disabling, Other)
  Sender: FDA-Public Use
  Company Number: None

PATIENT
  Age: 69 Year
  Sex: Female
  Weight: 54 kg

DRUGS (25)
  1. PREGABALIN [Suspect]
     Active Substance: PREGABALIN
     Indication: Product used for unknown indication
     Dosage: 200 MILLIGRAM, QD (CAPSULE)
     Route: 065
     Dates: start: 20220316
  2. MIDAZOLAM HYDROCHLORIDE [Concomitant]
     Active Substance: MIDAZOLAM HYDROCHLORIDE
     Indication: Product used for unknown indication
     Dosage: UNK (USE AS DIRECTED)
     Route: 065
     Dates: start: 20220824, end: 20220825
  3. CALCIUM CARBONATE [Concomitant]
     Active Substance: CALCIUM CARBONATE
     Indication: Product used for unknown indication
     Dosage: 1 DOSAGE FORM (2-3 TIMES/DAY)
     Route: 065
     Dates: start: 20190510
  4. CHLORHEXIDINE GLUCONATE [Concomitant]
     Active Substance: CHLORHEXIDINE GLUCONATE
     Indication: Product used for unknown indication
     Dosage: UNK (ANTIMICROBIAL TO WASH BODY AND HAIR WITH DAILY)
     Route: 065
     Dates: start: 20220909
  5. AMOXICILLIN\CLAVULANATE POTASSIUM [Concomitant]
     Active Substance: AMOXICILLIN\CLAVULANATE POTASSIUM
     Indication: Product used for unknown indication
     Dosage: 3 DOSAGE FORM (TABLET (UNCOATED, ORAL))
     Route: 048
     Dates: start: 20220714, end: 20220721
  6. CODEINE PHOSPHATE [Concomitant]
     Active Substance: CODEINE PHOSPHATE
     Indication: Product used for unknown indication
     Dosage: UNK (ONE OR TWO TABLETS TO BE TAKEN UP TO OUR TIME) TABLET UNCOATED, ORAL)
     Route: 048
     Dates: start: 20220106
  7. FERROUS SULFATE [Concomitant]
     Active Substance: FERROUS SULFATE
     Indication: Product used for unknown indication
     Dosage: UNK, QD (ONE DAILY INITIALLY INCREASING TO BE TAKEN )
     Route: 065
     Dates: start: 20220728, end: 20220825
  8. FLUTICASONE PROPIONATE [Concomitant]
     Active Substance: FLUTICASONE PROPIONATE
     Indication: Product used for unknown indication
     Dosage: UNK (USE AS DIRECTED)
     Route: 065
     Dates: start: 20210202
  9. HALOPERIDOL [Concomitant]
     Active Substance: HALOPERIDOL
     Indication: Product used for unknown indication
     Dosage: UNK (1.5-5MG IN SYRINGE DRIVER OVER 24HRS +/OR 0.5-1)
     Route: 065
     Dates: start: 20220926
  10. HYDROCORTISONE [Concomitant]
     Active Substance: HYDROCORTISONE
     Indication: Product used for unknown indication
     Dosage: UNK (TO BE APPLIED THINLY TO THE AFFECTED AREA(S) ONCE/TWICE A DAY)
     Route: 065
     Dates: start: 20220719, end: 20220729
  11. BUTYLSCOPOLAMINE BROMIDE [Concomitant]
     Active Substance: BUTYLSCOPOLAMINE BROMIDE
     Indication: Product used for unknown indication
     Dosage: UNK (20-120MG IN SYRINGE DRIVER OVER 24HOURS +/OR 20)
     Route: 065
     Dates: start: 20220926
  12. POLYETHYLENE GLYCOL 3350\POTASSIUM CHLORIDE\SODIUM BICARBONATE\SODIUM [Concomitant]
     Active Substance: POLYETHYLENE GLYCOL 3350\POTASSIUM CHLORIDE\SODIUM BICARBONATE\SODIUM CHLORIDE
     Indication: Product used for unknown indication
     Dosage: UNK (TAKE ONE OR TWO SACHETS DISSOLVED IN WATER (125)
     Route: 065
     Dates: start: 20210524
  13. FENTANYL [Concomitant]
     Active Substance: FENTANYL
     Indication: Product used for unknown indication
     Dosage: 1 DOSAGE FORM, TID (TRANSDERMAL PATCH)
     Route: 065
     Dates: start: 20220309
  14. MIDAZOLAM [Concomitant]
     Active Substance: MIDAZOLAM
     Indication: Product used for unknown indication
     Dosage: UNK (10-20MG VIA SYRINGE DRIVER OVER 24 HOURS AND/OR)
     Route: 065
     Dates: start: 20220926
  15. MORPHINE SULFATE [Concomitant]
     Active Substance: MORPHINE SULFATE
     Indication: Product used for unknown indication
     Dosage: UNK (40-120MG VIA SYRINGE DRIVER OVER 24HRS AND/OR 2)
     Route: 065
     Dates: start: 20210331
  16. MUPIROCIN [Concomitant]
     Active Substance: MUPIROCIN
     Indication: Product used for unknown indication
     Dosage: 3 NOT SPECIFIED, QD (APPLY FOR 5 DAYS)
     Route: 065
     Dates: start: 20220909, end: 20220914
  17. NITROFURANTOIN [Concomitant]
     Active Substance: NITROFURANTOIN
     Indication: Product used for unknown indication
     Dosage: 2 DOSAGE FORM, QD
     Route: 065
     Dates: start: 20211008, end: 20220903
  18. OMEPRAZOLE [Concomitant]
     Active Substance: OMEPRAZOLE
     Indication: Product used for unknown indication
     Dosage: 1 DOSAGE FORM, QD (CAPSULE) TO REDUCE ST
     Route: 065
     Dates: start: 20210420
  19. ONDANSETRON [Concomitant]
     Active Substance: ONDANSETRON
     Indication: Product used for unknown indication
     Dosage: 1 DOSAGE FORM (TO BE TAKEN UP TO4 TIMES A DAY), TABLET (UNCOATED, ORAL)
     Route: 048
     Dates: start: 20210629
  20. ACETAMINOPHEN [Concomitant]
     Active Substance: ACETAMINOPHEN
     Indication: Product used for unknown indication
     Dosage: UNK (ONE-TWO TABLETS TO BE TAKEN UP TO A MAXIMUM OF), TABLETLET (UNCOATED, ORAL)
     Route: 048
     Dates: start: 20210420
  21. AMDINOCILLIN PIVOXIL [Concomitant]
     Active Substance: AMDINOCILLIN PIVOXIL
     Indication: Infection
     Dosage: UNK (TAKE TWO TABLETS FOR THE FIRST DOSE, THEN ONE TABLET THREE TIMES A DAY FOR 7 DAYS TO TREAT  INF
     Route: 048
     Dates: start: 20220912, end: 20220921
  22. RAMIPRIL [Concomitant]
     Active Substance: RAMIPRIL
     Indication: Product used for unknown indication
     Dosage: 1 DOSAGE FORM 1 EVERY DAY (AT NIGHT)
     Route: 065
     Dates: start: 20190510
  23. SALIVIX [Concomitant]
     Indication: Dry mouth
     Dosage: UNK, PRN (SUCK)
     Route: 065
     Dates: start: 20220926
  24. TRIMETHOPRIM [Concomitant]
     Active Substance: TRIMETHOPRIM
     Indication: Product used for unknown indication
     Dosage: 1 DOSAGE FORM, QD AS DIRECTED TABLET (UNCOATED, ORAL)
     Route: 048
     Dates: start: 20220824
  25. WATER [Concomitant]
     Active Substance: WATER
     Indication: Product used for unknown indication
     Dosage: UNK (USE TO MIX WITH DRUGS IN SYRINGE DRIVER)
     Route: 065
     Dates: start: 20220926

REACTIONS (1)
  - Tonic clonic movements [Recovered/Resolved]

NARRATIVE: CASE EVENT DATE: 20220927
